FAERS Safety Report 20651080 (Version 3)
Quarter: 2022Q2

REPORT INFORMATION
  Report Type: Spontaneous
  Country: JP (occurrence: JP)
  Receive Date: 20220329
  Receipt Date: 20220617
  Transmission Date: 20220721
  Serious: Yes (Death, Life-Threatening, Other)
  Sender: FDA-Public Use
  Company Number: JP-JAZZ-2022-JP-008402

PATIENT
  Age: 70 Year
  Sex: Female
  Weight: 57.2 kg

DRUGS (2)
  1. DEFITELIO [Suspect]
     Active Substance: DEFIBROTIDE SODIUM
     Indication: Venoocclusive liver disease
     Dosage: 25 MILLIGRAM/KILOGRAM, QD (25 MG/KG/24 HOURS)
     Route: 042
     Dates: start: 20220301, end: 20220308
  2. OZAGREL NA [Concomitant]
     Indication: Product used for unknown indication
     Dosage: UNK
     Dates: end: 20220301

REACTIONS (3)
  - Acute myeloid leukaemia [Fatal]
  - Thrombotic microangiopathy [Not Recovered/Not Resolved]
  - Urine output decreased [Unknown]

NARRATIVE: CASE EVENT DATE: 20220101
